FAERS Safety Report 7487855-1 (Version None)
Quarter: 2011Q2

REPORT INFORMATION
  Report Type: 
  Country: None (occurrence: None)
  Receive Date: 20110511
  Receipt Date: 20110427
  Transmission Date: 20111010
  Serious: Yes (Other)
  Sender: FDA-Public Use
  Company Number: 908253

PATIENT
  Age: 18 Month
  Sex: Male

DRUGS (7)
  1. ACYCLOVIR [Concomitant]
  2. CEFOTAXIME [Concomitant]
  3. DIAZEPAM [Concomitant]
  4. LORAZEPAM [Concomitant]
  5. (PARALDEHYDE) [Concomitant]
  6. PHENYTOIN [Suspect]
     Indication: STATUS EPILEPTICUS
     Dosage: 198 MG MILLIGRAM(S), INTRAVENOUS (NOT OTHERWISE SPECIFIED)
     Route: 042
     Dates: start: 20110404, end: 20110404
  7. DIAZEPAM [Concomitant]

REACTIONS (6)
  - ERYTHEMA [None]
  - INFUSION RELATED REACTION [None]
  - STRIDOR [None]
  - TACHYCARDIA [None]
  - RASH [None]
  - PALLOR [None]
